FAERS Safety Report 4949515-8 (Version None)
Quarter: 2006Q1

REPORT INFORMATION
  Report Type: 
  Country: None (occurrence: None)
  Receive Date: 20060316
  Receipt Date: 20060304
  Transmission Date: 20060701
  Serious: Yes (Death)
  Sender: FDA-Public Use
  Company Number: 2006031377

PATIENT
  Sex: Male

DRUGS (1)
  1. NICOTINE [Suspect]
     Dosage: UNSPECIFIED, TRANSDERMAL
     Route: 062

REACTIONS (1)
  - MYOCARDIAL INFARCTION [None]
